FAERS Safety Report 7017419-5 (Version None)
Quarter: 2010Q3

REPORT INFORMATION
  Report Type: 
  Country: None (occurrence: None)
  Receive Date: 20100909
  Receipt Date: 20100706
  Transmission Date: 20110219
  Serious: No
  Sender: FDA-Public Use
  Company Number: 2010SP037566

PATIENT
  Age: 40 Year
  Sex: Female

DRUGS (1)
  1. SAPHRIS [Suspect]
     Indication: SCHIZOPHRENIA
     Dosage: SL

REACTIONS (3)
  - CONFUSIONAL STATE [None]
  - DYSGEUSIA [None]
  - PSYCHOMOTOR HYPERACTIVITY [None]
